FAERS Safety Report 19210026 (Version 2)
Quarter: 2021Q2

REPORT INFORMATION
  Report Type: Spontaneous
  Country: CA (occurrence: CA)
  Receive Date: 20210504
  Receipt Date: 20210621
  Transmission Date: 20210717
  Serious: Yes (Other)
  Sender: FDA-Public Use
  Company Number: CA-TEVA-2021-CA-1907966

PATIENT
  Age: 50 Year
  Sex: Female

DRUGS (15)
  1. CALCIPOTRIENE AND BETAMETHASONE DIPROPIONATE [Concomitant]
     Active Substance: BETAMETHASONE DIPROPIONATE\CALCIPOTRIENE
  2. DOXYCYCLINE. [Concomitant]
     Active Substance: DOXYCYCLINE
  3. ROSIVER [Concomitant]
     Route: 061
  4. CELEBREX [Concomitant]
     Active Substance: CELECOXIB
  5. BETAMETHASONE DIPROPIONATE. [Concomitant]
     Active Substance: BETAMETHASONE DIPROPIONATE
     Dosage: UNK
     Route: 061
  6. CODEINE [Concomitant]
     Active Substance: CODEINE
  7. TOBRADEX [Suspect]
     Active Substance: DEXAMETHASONE\TOBRAMYCIN
     Indication: PRODUCT USED FOR UNKNOWN INDICATION
  8. HALOBETASOL [Concomitant]
     Active Substance: HALOBETASOL PROPIONATE
  9. CICLOSPORIN [Concomitant]
     Active Substance: CYCLOSPORINE
  10. ACITRETIN UNK [Suspect]
     Active Substance: ACITRETIN
     Indication: PRODUCT USED FOR UNKNOWN INDICATION
     Dosage: 1 DOSAGE FORMS DAILY; 1 DF, QD
     Route: 048
  11. FOLIC ACID. [Suspect]
     Active Substance: FOLIC ACID
     Indication: PRODUCT USED FOR UNKNOWN INDICATION
     Route: 048
  12. METHOTREXATE. [Suspect]
     Active Substance: METHOTREXATE
     Indication: PRODUCT USED FOR UNKNOWN INDICATION
     Dosage: UNK, Q WEEK
     Route: 048
  13. CLOBETASOL [Concomitant]
     Active Substance: CLOBETASOL
     Route: 061
  14. NAPROXEN. [Concomitant]
     Active Substance: NAPROXEN
     Dosage: UNK
     Route: 048
  15. IVERMECTINE [Concomitant]
     Active Substance: IVERMECTIN

REACTIONS (12)
  - Joint swelling [Unknown]
  - Psoriatic arthropathy [Unknown]
  - Alopecia [Unknown]
  - Drug ineffective [Unknown]
  - Abdominal discomfort [Unknown]
  - Arthritis [Unknown]
  - Nausea [Unknown]
  - Psoriasis [Unknown]
  - Gait inability [Unknown]
  - Skin reaction [Unknown]
  - Dry skin [Unknown]
  - Drug intolerance [Unknown]
